FAERS Safety Report 9339294 (Version 1)
Quarter: 2013Q2

REPORT INFORMATION
  Report Type: Spontaneous
  Country: NL (occurrence: NL)
  Receive Date: 20130610
  Receipt Date: 20130610
  Transmission Date: 20140414
  Serious: Yes (Other)
  Sender: FDA-Public Use
  Company Number: NL-UCBSA-086333

PATIENT
  Sex: Female

DRUGS (2)
  1. CIMZIA [Suspect]
     Indication: RHEUMATOID ARTHRITIS
     Route: 058
     Dates: start: 20130424, end: 20130508
  2. HUMIRA [Concomitant]
     Dates: start: 201301, end: 201304

REACTIONS (2)
  - Oral candidiasis [Unknown]
  - Migraine [Unknown]
